FAERS Safety Report 10440705 (Version 1)
Quarter: 2014Q3

REPORT INFORMATION
  Report Type: Spontaneous
  Country: US (occurrence: None)
  Receive Date: 20140908
  Receipt Date: 20140908
  Transmission Date: 20150326
  Serious: No
  Sender: FDA-Public Use
  Company Number: None

PATIENT
  Age: 13 Year
  Sex: Male
  Weight: 54.43 kg

DRUGS (2)
  1. METHYLPHENIDATE [Suspect]
     Active Substance: METHYLPHENIDATE
     Indication: DISTURBANCE IN ATTENTION
     Dosage: 2 PILLS, ONCE DAILY
  2. METHYLPHENIDATE [Suspect]
     Active Substance: METHYLPHENIDATE
     Indication: ABNORMAL BEHAVIOUR
     Dosage: 2 PILLS, ONCE DAILY

REACTIONS (6)
  - Product substitution issue [None]
  - Disturbance in attention [None]
  - Product quality issue [None]
  - Product formulation issue [None]
  - Feeling abnormal [None]
  - Drug ineffective [None]
